FAERS Safety Report 12712575 (Version 2)
Quarter: 2017Q3

REPORT INFORMATION
  Report Type: Spontaneous
  Country: US (occurrence: US)
  Receive Date: 20160902
  Receipt Date: 20170718
  Transmission Date: 20171127
  Serious: Yes (Hospitalization, Other)
  Sender: FDA-Public Use
  Company Number: US-JNJFOC-20160825279

PATIENT
  Age: 68 Year
  Sex: Female

DRUGS (7)
  1. ACARBOSE. [Suspect]
     Active Substance: ACARBOSE
     Indication: TYPE 2 DIABETES MELLITUS
     Route: 048
  2. GLUCOTROL [Suspect]
     Active Substance: GLIPIZIDE
     Indication: PRODUCT USED FOR UNKNOWN INDICATION
     Route: 048
     Dates: end: 20150926
  3. METOPROLOL TARTRATE. [Concomitant]
     Active Substance: METOPROLOL TARTRATE
     Indication: BLOOD PRESSURE MEASUREMENT
     Route: 065
     Dates: start: 1998
  4. METOPROLOL TARTRATE. [Concomitant]
     Active Substance: METOPROLOL TARTRATE
     Indication: HEART RATE
     Route: 065
     Dates: start: 1998
  5. VALSARTAN. [Concomitant]
     Active Substance: VALSARTAN
     Indication: BLOOD PRESSURE MEASUREMENT
     Route: 065
     Dates: start: 2015
  6. INVOKANA [Suspect]
     Active Substance: CANAGLIFLOZIN
     Indication: DIABETES MELLITUS MANAGEMENT
     Route: 048
     Dates: start: 20150911, end: 20150926
  7. GLUCOPHAGE [Suspect]
     Active Substance: METFORMIN HYDROCHLORIDE
     Indication: DIABETES MELLITUS
     Route: 048
     Dates: start: 2010, end: 20150926

REACTIONS (12)
  - Abdominal pain [Recovering/Resolving]
  - Dehydration [Unknown]
  - Autoimmune pancreatitis [Unknown]
  - Diabetic ketoacidosis [Recovered/Resolved]
  - Bile duct obstruction [Unknown]
  - Urinary tract infection [Recovering/Resolving]
  - Amnesia [Unknown]
  - Discomfort [Unknown]
  - Alopecia [Unknown]
  - Vision blurred [Unknown]
  - Impaired gastric emptying [Unknown]
  - Atrial fibrillation [Recovering/Resolving]

NARRATIVE: CASE EVENT DATE: 201509
